FAERS Safety Report 17207913 (Version 1)
Quarter: 2019Q4

REPORT INFORMATION
  Report Type: Report from Study
  Country: IE (occurrence: IE)
  Receive Date: 20191227
  Receipt Date: 20191227
  Transmission Date: 20200122
  Serious: Yes (Hospitalization)
  Sender: FDA-Public Use
  Company Number: IE-JNJFOC-20191238488

PATIENT
  Age: 22 Year
  Sex: Female

DRUGS (6)
  1. MERCAPTOPURINE. [Concomitant]
     Active Substance: MERCAPTOPURINE
  2. MOLAXOLE [Concomitant]
     Active Substance: POLYETHYLENE GLYCOL 3350\POTASSIUM CHLORIDE\SODIUM BICARBONATE\SODIUM CHLORIDE
  3. NEXAZOLE [Concomitant]
  4. FOLIC ACID. [Concomitant]
     Active Substance: FOLIC ACID
  5. STELARA [Suspect]
     Active Substance: USTEKINUMAB
     Indication: CROHN^S DISEASE
     Route: 058
     Dates: start: 20190816
  6. CALCICHEW [Concomitant]
     Active Substance: CALCIUM CARBONATE

REACTIONS (4)
  - Infection [Recovered/Resolved]
  - Product use issue [Unknown]
  - Liver disorder [Recovered/Resolved]
  - Off label use [Unknown]

NARRATIVE: CASE EVENT DATE: 20191122
